FAERS Safety Report 13477099 (Version 2)
Quarter: 2017Q2

REPORT INFORMATION
  Report Type: Spontaneous
  Country: FR (occurrence: FR)
  Receive Date: 20170425
  Receipt Date: 20170602
  Transmission Date: 20170830
  Serious: Yes (Hospitalization, Other)
  Sender: FDA-Public Use
  Company Number: FR-PFIZER INC-2017173598

PATIENT
  Age: 36 Year
  Sex: Female
  Weight: 76 kg

DRUGS (3)
  1. OMEPRAZOLE EG [Interacting]
     Active Substance: OMEPRAZOLE
     Indication: ABDOMINAL PAIN UPPER
     Dosage: 1 DF, 1X/DAY
     Route: 048
     Dates: start: 20170411, end: 20170412
  2. RELPAX [Suspect]
     Active Substance: ELETRIPTAN HYDROBROMIDE
     Indication: MIGRAINE
     Dosage: 20 MG, UNK
     Route: 048
     Dates: start: 20170407, end: 20170411
  3. GAVISCON /00237601/ [Interacting]
     Active Substance: ALUMINUM HYDROXIDE\MAGNESIUM CARBONATE
     Indication: ABDOMINAL PAIN UPPER
     Dosage: 1 DF, 3X/DAY
     Route: 048
     Dates: start: 20170411, end: 20170412

REACTIONS (13)
  - Urticaria [Not Recovered/Not Resolved]
  - Laryngeal oedema [Recovered/Resolved]
  - Tongue oedema [Recovered/Resolved]
  - Polyarthritis [Unknown]
  - Asthenia [Unknown]
  - Myalgia [Unknown]
  - Arthralgia [Unknown]
  - Rash papular [Unknown]
  - Drug interaction [Unknown]
  - Pharyngeal paraesthesia [Unknown]
  - Pharyngeal oedema [Recovered/Resolved]
  - Arthritis [Recovered/Resolved]
  - Urticaria [Unknown]

NARRATIVE: CASE EVENT DATE: 20170411
